FAERS Safety Report 4906949-5 (Version None)
Quarter: 2006Q1

REPORT INFORMATION
  Report Type: 
  Country: None (occurrence: None)
  Receive Date: 20060207
  Receipt Date: 20060126
  Transmission Date: 20060701
  Serious: Yes (Death, Life-Threatening)
  Sender: FDA-Public Use
  Company Number: HQWYE533827JAN06

PATIENT
  Age: 66 Year
  Sex: Female

DRUGS (4)
  1. GEMTUZUMAB OZOGAMICIN (GEMTUZUMAB OZOGAMICIN, INJECTION) LOT NO.:2004P [Suspect]
     Indication: ACUTE MYELOID LEUKAEMIA
     Dosage: 9 MG 1X PER 1 DAY
     Route: 042
     Dates: start: 20060120, end: 20060120
  2. MEROPENEM (MEROPENEM) [Concomitant]
  3. AMIKACIN [Concomitant]
  4. TEICOPLANIN (TEICOPLANIN) [Concomitant]

REACTIONS (6)
  - ANURIA [None]
  - ATELECTASIS [None]
  - HYPOTENSION [None]
  - INTESTINAL ISCHAEMIA [None]
  - PLEURAL EFFUSION [None]
  - SEPTIC SHOCK [None]
